FAERS Safety Report 14163981 (Version 6)
Quarter: 2017Q4

REPORT INFORMATION
  Report Type: Spontaneous
  Country: RU (occurrence: RU)
  Receive Date: 20171106
  Receipt Date: 20171220
  Transmission Date: 20180321
  Serious: Yes (Hospitalization, Other)
  Sender: FDA-Public Use
  Company Number: RU-BEH-2017084804

PATIENT
  Age: 16 Year
  Sex: Female

DRUGS (10)
  1. PRIVIGEN [Suspect]
     Active Substance: HUMAN IMMUNOGLOBULIN G
     Indication: IMMUNODEFICIENCY COMMON VARIABLE
     Dosage: 50 ML, TOT
     Route: 042
     Dates: start: 20160303
  2. PRIVIGEN [Suspect]
     Active Substance: HUMAN IMMUNOGLOBULIN G
     Dosage: 200 ML, TOT
     Route: 042
     Dates: start: 20160401
  3. PRIVIGEN [Suspect]
     Active Substance: HUMAN IMMUNOGLOBULIN G
     Dosage: 200 ML, TOT
     Route: 042
     Dates: start: 20170424
  4. PRIVIGEN [Suspect]
     Active Substance: HUMAN IMMUNOGLOBULIN G
     Dosage: 200 ML, TOT
     Route: 042
     Dates: start: 20170607
  5. PRIVIGEN [Suspect]
     Active Substance: HUMAN IMMUNOGLOBULIN G
     Dosage: 200 ML, TOT
     Route: 042
     Dates: start: 20170316
  6. PRIVIGEN [Suspect]
     Active Substance: HUMAN IMMUNOGLOBULIN G
     Dosage: 25 ML, TOT
     Route: 042
     Dates: start: 20170607
  7. PRIVIGEN [Suspect]
     Active Substance: HUMAN IMMUNOGLOBULIN G
     Dosage: 50 ML, TOT
     Route: 042
     Dates: start: 20160401
  8. PRIVIGEN [Suspect]
     Active Substance: HUMAN IMMUNOGLOBULIN G
     Dosage: 50 ML, TOT
     Route: 042
     Dates: start: 20170316
  9. PRIVIGEN [Suspect]
     Active Substance: HUMAN IMMUNOGLOBULIN G
     Dosage: 50 ML, TOT
     Route: 042
     Dates: start: 20170424
  10. PRIVIGEN [Suspect]
     Active Substance: HUMAN IMMUNOGLOBULIN G
     Indication: PRIMARY IMMUNODEFICIENCY SYNDROME
     Dosage: 200 ML, TOT
     Route: 042
     Dates: start: 20160303

REACTIONS (8)
  - Polymerase chain reaction positive [Unknown]
  - Neutropenia [Unknown]
  - Pyrexia [Unknown]
  - Respiratory tract infection viral [Unknown]
  - Suspected transmission of an infectious agent via product [Unknown]
  - Agranulocytosis [Unknown]
  - Parvovirus B19 test positive [Unknown]
  - Hypertension [Unknown]

NARRATIVE: CASE EVENT DATE: 20160402
